FAERS Safety Report 7767526-4 (Version None)
Quarter: 2011Q3

REPORT INFORMATION
  Report Type: 
  Country: None (occurrence: None)
  Receive Date: 20110922
  Receipt Date: 20110912
  Transmission Date: 20111222
  Serious: No
  Sender: FDA-Public Use
  Company Number: US-JNJFOC-20110906853

PATIENT
  Sex: Male
  Weight: 61.24 kg

DRUGS (8)
  1. FENTANYL-100 [Suspect]
     Dosage: NDC NUMBER: 0781-7240-55
     Route: 062
     Dates: start: 20110101, end: 20110101
  2. FENTANYL-100 [Suspect]
     Dosage: NDC NUMBER: 0781-7240-55
     Route: 062
     Dates: start: 20110909
  3. FENTANYL-100 [Suspect]
     Indication: ABDOMINAL OPERATION
     Dosage: NDC NUMBER: 0781-7240-55
     Route: 062
     Dates: start: 20110909
  4. VITAMINS NOS [Concomitant]
     Route: 048
  5. UNSPECIFIED HERBAL PRODUCTS [Concomitant]
     Route: 048
  6. FENTANYL-100 [Suspect]
     Indication: SURGERY
     Dosage: NDC NUMBER: 0781-7240-55
     Route: 062
     Dates: start: 20110101, end: 20110101
  7. FENTANYL-100 [Suspect]
     Indication: PAIN
     Dosage: NDC NUMBER: 0781-7240-55
     Route: 062
     Dates: start: 20110909
  8. FENTANYL-100 [Suspect]
     Dosage: NDC NUMBER: 0781-7240-55
     Route: 062
     Dates: start: 20110101, end: 20110101

REACTIONS (5)
  - DRUG DOSE OMISSION [None]
  - WRONG TECHNIQUE IN DRUG USAGE PROCESS [None]
  - PRODUCT QUALITY ISSUE [None]
  - APPLICATION SITE ERYTHEMA [None]
  - PRODUCT OUTER PACKAGING ISSUE [None]
